FAERS Safety Report 8236714-5 (Version None)
Quarter: 2012Q1

REPORT INFORMATION
  Report Type: 
  Country: None (occurrence: None)
  Receive Date: 20120326
  Receipt Date: 20120326
  Transmission Date: 20120608
  Serious: Yes (Disabling)
  Sender: FDA-Public Use
  Company Number: None

PATIENT
  Sex: Male

DRUGS (2)
  1. SEPTOCAINE, ARTICAINE HCL AND EPINEPHRINE,  ARTICAINE HCL 4% AND EPINE [Suspect]
     Indication: LOCAL ANAESTHESIA
     Dosage: 1.2 ML MANDIBULAR NERV BLOCK
     Dates: start: 20120125
  2. SEPTOCAINE, ARTICAINE HCL AND EPINEPHRINE,  ARTICAINE HCL 4% AND EPINE [Suspect]
     Indication: TOOTH EXTRACTION
     Dosage: 1.2 ML MANDIBULAR NERV BLOCK
     Dates: start: 20120125

REACTIONS (3)
  - HYPOAESTHESIA [None]
  - PROCEDURAL SITE REACTION [None]
  - PARAESTHESIA [None]
